FAERS Safety Report 12160906 (Version 1)
Quarter: 2016Q1

REPORT INFORMATION
  Report Type: Report from Study
  Country: US (occurrence: US)
  Receive Date: 20160308
  Receipt Date: 20160308
  Transmission Date: 20160526
  Serious: Yes (Hospitalization)
  Sender: FDA-Public Use
  Company Number: US-ABBVIE-16K-163-1573689-00

PATIENT
  Age: 32 Year
  Sex: Female

DRUGS (1)
  1. HUMIRA [Suspect]
     Active Substance: ADALIMUMAB
     Indication: PSORIASIS
     Route: 058
     Dates: start: 20140704, end: 20160217

REACTIONS (4)
  - Hepatomegaly [Unknown]
  - Nasopharyngitis [Unknown]
  - Gallbladder enlargement [Unknown]
  - Vomiting [Unknown]

NARRATIVE: CASE EVENT DATE: 20160218
